FAERS Safety Report 6288630-6 (Version None)
Quarter: 2009Q3

REPORT INFORMATION
  Report Type: 
  Country: None (occurrence: None)
  Receive Date: 20090729
  Receipt Date: 20090723
  Transmission Date: 20100115
  Serious: Yes (Hospitalization)
  Sender: FDA-Public Use
  Company Number: FR-ASTRAZENECA-2009SE05614

PATIENT
  Age: 54 Year
  Sex: Female

DRUGS (2)
  1. NEXIUM [Suspect]
     Dosage: 8 MG/HOUR DURING SEVERAL DAYS
     Route: 042
     Dates: start: 20090414, end: 20090423
  2. TAZOCILLINE [Suspect]
     Route: 042
     Dates: start: 20090421, end: 20090423

REACTIONS (2)
  - INCORRECT DOSE ADMINISTERED [None]
  - THROMBOCYTOPENIA [None]
